FAERS Safety Report 24291645 (Version 1)
Quarter: 2024Q3

REPORT INFORMATION
  Report Type: Spontaneous
  Country: US (occurrence: None)
  Receive Date: 20240906
  Receipt Date: 20240906
  Transmission Date: 20241017
  Serious: No
  Sender: DOMPE FARMACEUTICI
  Company Number: US-FARMAPROD-202308-202310-2926

PATIENT
  Sex: Female
  Weight: 59.1 kg

DRUGS (4)
  1. OXERVATE [Suspect]
     Active Substance: CENEGERMIN-BKBJ
     Indication: Neurotrophic keratopathy
     Route: 047
     Dates: start: 20230824
  2. INDAPAMIDE [Concomitant]
     Active Substance: INDAPAMIDE
  3. KLOR-CON M10 [Concomitant]
     Active Substance: POTASSIUM CHLORIDE
  4. VALSARTAN [Concomitant]
     Active Substance: VALSARTAN

REACTIONS (1)
  - Ulcer [Unknown]
